FAERS Safety Report 5836455-5 (Version None)
Quarter: 2008Q3

REPORT INFORMATION
  Report Type: 
  Country: None (occurrence: None)
  Receive Date: 20080807
  Receipt Date: 20080731
  Transmission Date: 20090109
  Serious: Yes (Death, Other)
  Sender: FDA-Public Use
  Company Number: PHBS2008DE05286

PATIENT
  Sex: Male

DRUGS (8)
  1. CYCLOSPORINE [Suspect]
     Indication: HEART TRANSPLANT
     Dosage: 175 MG/DAY
  2. CYCLOSPORINE [Suspect]
     Dosage: 50 MG/DAY
  3. AZATHIOPRINE [Concomitant]
     Indication: HEART TRANSPLANT
     Dosage: 50 MG, UNK
  4. PREDNISONE [Concomitant]
     Indication: NON-HODGKIN'S LYMPHOMA STAGE IV
     Dosage: UNK
     Dates: start: 20041201, end: 20050601
  5. VINCRISTINE [Concomitant]
     Indication: NON-HODGKIN'S LYMPHOMA STAGE IV
     Dosage: UNK
     Dates: start: 20041201
  6. RITUXIMAB [Concomitant]
     Indication: NON-HODGKIN'S LYMPHOMA STAGE IV
     Dosage: UNK
     Dates: start: 20050101, end: 20050601
  7. GEMCITABINE [Concomitant]
     Indication: NON-HODGKIN'S LYMPHOMA STAGE IV
     Dosage: UNK
     Dates: start: 20050601
  8. OXALIPLATIN [Concomitant]
     Indication: NON-HODGKIN'S LYMPHOMA STAGE IV
     Dosage: UNK
     Dates: start: 20050601

REACTIONS (8)
  - B-CELL LYMPHOMA [None]
  - B-CELL LYMPHOMA RECURRENT [None]
  - LYMPHOPROLIFERATIVE DISORDER [None]
  - MUCOSAL INFLAMMATION [None]
  - ORAL HERPES [None]
  - PANCYTOPENIA [None]
  - POLYNEUROPATHY [None]
  - SEPSIS [None]
